FAERS Safety Report 11081095 (Version 1)
Quarter: 2015Q2

REPORT INFORMATION
  Report Type: Spontaneous
  Country: US (occurrence: US)
  Receive Date: 20150501
  Receipt Date: 20150501
  Transmission Date: 20150821
  Serious: Yes (Hospitalization, Disabling, Other)
  Sender: FDA-Public Use
  Company Number: US-PFIZER INC-2015081131

PATIENT
  Sex: Female

DRUGS (17)
  1. LEVOTHYROXINE [Concomitant]
     Active Substance: LEVOTHYROXINE
     Dosage: 125 UG/24H, 1X/DAY (125MCG ONE PER DAY IN THE MORNING)
  2. PRILOSEC OTC [Concomitant]
     Active Substance: OMEPRAZOLE MAGNESIUM
     Dosage: 1 DF, 1X/DAY IN THE MORNING
  3. ASPIRIN. [Concomitant]
     Active Substance: ASPIRIN
     Dosage: 81 MG, 1X/DAY
  4. BENICAR [Concomitant]
     Active Substance: OLMESARTAN MEDOXOMIL
     Dosage: 20 MG, 1X/DAY
  5. RELION HUMULIN N [Concomitant]
     Dosage: 20 IU, 2X/DAY
  6. RELION HUMULIN R [Concomitant]
     Dosage: SLIDING SCALE 10-18 UNITS BEFORE EACH MEAL
  7. SPIRIVA [Concomitant]
     Active Substance: TIOTROPIUM BROMIDE MONOHYDRATE
     Dosage: 1 DF, DAILY (1 PUFF PER DAY)
  8. TRIAMTERENE AND HYDROCHLOROTHIAZIDE [Concomitant]
     Active Substance: HYDROCHLOROTHIAZIDE\TRIAMTERENE
     Dosage: 1 DF, 1X/DAY (37.5/25 PER DAY IN THE MORNING)
  9. CALTRATE 600+D [Concomitant]
     Dosage: 600 MG, 2X/DAY, MORNING AND NIGHT
  10. HYDROCODONE [Concomitant]
     Active Substance: HYDROCODONE
     Dosage: 2 DF, DAILY (5/500 TWO PER DAY)
  11. XALATAN [Suspect]
     Active Substance: LATANOPROST
     Dosage: UNK
     Dates: start: 1996
  12. AZOPT [Concomitant]
     Active Substance: BRINZOLAMIDE
     Dosage: 1 GTT, 2X/DAY (15MG ONE DROP MORNING AND NIGHT)
  13. COREG [Concomitant]
     Active Substance: CARVEDILOL
     Dosage: 12.5 MG, 2X/DAY
  14. GABAPENTIN. [Concomitant]
     Active Substance: GABAPENTIN
     Dosage: 900 MG, DAILY (300MG THREE PER DAY)
  15. LIPITOR [Concomitant]
     Active Substance: ATORVASTATIN CALCIUM
     Dosage: 40 MG, 1X/DAY IN THE MORNING
  16. METANX [Concomitant]
     Active Substance: LEVOMEFOLATE CALCIUM\METHYLCOBALAMIN\PYRIDOXAL PHOSPHATE ANHYDROUS
     Dosage: 2 DF, 1X/DAY IN THE MORNING
  17. ADVAIR HFA [Concomitant]
     Active Substance: FLUTICASONE PROPIONATE\SALMETEROL XINAFOATE
     Dosage: 1 DF, 2X/DAY (5/50 ONE PUFF 2X/DAY, MORNING AND NIGHT)

REACTIONS (13)
  - Chronic obstructive pulmonary disease [Unknown]
  - Eye disorder [Unknown]
  - Adverse event [Unknown]
  - Neoplasm malignant [Unknown]
  - Hernia [Unknown]
  - Glaucoma [Unknown]
  - Gallbladder disorder [Unknown]
  - Gait disturbance [Unknown]
  - Gastric neoplasm [Unknown]
  - Uterine disorder [Unknown]
  - Cardiovascular disorder [Unknown]
  - Mastectomy [Unknown]
  - Cardiac disorder [Unknown]

NARRATIVE: CASE EVENT DATE: 1998
